FAERS Safety Report 8018860-4 (Version None)
Quarter: 2012Q1

REPORT INFORMATION
  Report Type: 
  Country: None (occurrence: None)
  Receive Date: 20120103
  Receipt Date: 20111228
  Transmission Date: 20120608
  Serious: Yes (Death, Hospitalization)
  Sender: FDA-Public Use
  Company Number: DE-BAYER-200922123GPV

PATIENT
  Age: 70 Year
  Sex: Male
  Weight: 80 kg

DRUGS (23)
  1. AMLODIPINE [Concomitant]
     Dosage: 0.5 DF, QD
     Dates: start: 20050101, end: 20090323
  2. METOPROLOL SUCCINATE [Concomitant]
     Dosage: 100 MG, QD
     Dates: start: 20050101, end: 20090401
  3. LISINOPRIL [Concomitant]
     Dosage: 1.5 DF, QD
     Dates: start: 20050101, end: 20090323
  4. TORSEMIDE [Concomitant]
     Dosage: 5 MG, QD
     Dates: start: 20090416, end: 20090601
  5. METOCLOPRAMIDE [Concomitant]
     Dosage: 20 GTT, QID
     Dates: start: 20090501, end: 20090601
  6. METOPROLOL SUCCINATE [Concomitant]
     Dosage: 95 MG, QD
     Dates: start: 20090406, end: 20090415
  7. GLYBURIDE [Concomitant]
     Dosage: 1 DF, BID
     Dates: start: 20051001, end: 20090101
  8. CIPROFLOXACIN [Concomitant]
     Dosage: 1 DF, BID
     Dates: start: 20090404, end: 20090408
  9. TORSEMIDE [Concomitant]
     Dosage: 10 MG, BID
     Dates: start: 20090305, end: 20090415
  10. NEXAVAR [Suspect]
     Dosage: 400 MG, QD
     Dates: start: 20090415, end: 20090522
  11. OMEPRAZOLE [Concomitant]
     Dosage: 40 MG, QD
     Dates: start: 20090401, end: 20090601
  12. SPIRONOLACTONE [Concomitant]
     Dosage: 50 MG, QD
     Dates: start: 20090220, end: 20090312
  13. TORSEMIDE [Concomitant]
     Dosage: 10 MG, QD
     Dates: start: 20090201, end: 20090304
  14. TILIDIN [Concomitant]
     Dosage: 25 GTT, QID
     Dates: start: 20090416, end: 20090101
  15. CIPROFLOXACIN [Concomitant]
     Dosage: 1 DF, BID
     Dates: start: 20090507, end: 20090513
  16. NEXAVAR [Suspect]
     Indication: HEPATIC NEOPLASM MALIGNANT
     Dosage: UNK UNK, UNK
     Route: 048
     Dates: start: 20090312, end: 20090408
  17. ULCOZOL [Concomitant]
     Dosage: 1 DF, BID
     Dates: start: 20090101, end: 20090101
  18. CIPROFLOXACIN [Concomitant]
     Dosage: 1 DF, BID
     Dates: start: 20090516, end: 20090518
  19. SPIRONOLACTONE [Concomitant]
     Dosage: 25 MG, QD
     Dates: start: 20090201, end: 20090219
  20. PANTOPRAZOLE SODIUM [Concomitant]
     Dosage: 20 MG, QD
     Dates: start: 20090213, end: 20090401
  21. METOPROLOL SUCCINATE [Concomitant]
     Dosage: 47.5 MG, QD
     Dates: start: 20090416, end: 20090601
  22. PREDNISOLONE [Concomitant]
     Dosage: DAILY DOSE .5 DF
     Dates: start: 20090201, end: 20090601
  23. METFORMIN HCL [Concomitant]
     Dosage: 850 MG, BID
     Dates: start: 20051001, end: 20090601

REACTIONS (6)
  - GENERAL PHYSICAL HEALTH DETERIORATION [None]
  - HEPATIC NEOPLASM MALIGNANT [None]
  - ANAEMIA [None]
  - DYSPNOEA [None]
  - FATIGUE [None]
  - DIARRHOEA [None]
